FAERS Safety Report 11144634 (Version 1)
Quarter: 2015Q2

REPORT INFORMATION
  Report Type: Spontaneous
  Country: JP (occurrence: JP)
  Receive Date: 20150528
  Receipt Date: 20150528
  Transmission Date: 20150821
  Serious: Yes (Other)
  Sender: FDA-Public Use
  Company Number: JP-CIPLA LTD.-2015JP04121

PATIENT

DRUGS (9)
  1. EPIRUBICIN [Suspect]
     Active Substance: EPIRUBICIN
     Indication: BREAST CANCER
     Dosage: 90 MG/M2 Q3W FOR FOUR COURSES
     Route: 042
  2. PACLITAXEL. [Suspect]
     Active Substance: PACLITAXEL
     Indication: BREAST CANCER
     Dosage: 260 MG/M2 Q3W FOR FOUR COURSES
     Route: 042
  3. CYCLOPHOSPHAMIDE. [Suspect]
     Active Substance: CYCLOPHOSPHAMIDE
     Indication: BREAST CANCER
     Dosage: 600 MG/M2 Q3W FOR FOUR COURSES
     Route: 042
  4. DEXCHLORPHENIRAMINE [Concomitant]
     Active Substance: DEXCHLORPHENIRAMINE
     Dosage: 5 MG, UNK
     Route: 042
  5. APREPITANT. [Concomitant]
     Active Substance: APREPITANT
     Dosage: ON DAY 1 BEFORE CHEMOTHERAPY AND ON DAYS 2 AND 3 AFTER CHEMOTHERAPY AS REQUIRED
     Route: 065
  6. DEXAMETHASONE. [Concomitant]
     Active Substance: DEXAMETHASONE
     Dosage: 2-4 MG ADMINISTERED ON DAYS 2-4 AFTER CHEMOTHERAPY
     Route: 048
  7. RANITIDINE [Concomitant]
     Active Substance: RANITIDINE\RANITIDINE HYDROCHLORIDE
     Dosage: 50 MG, UNK
     Route: 042
  8. DEXAMETHASONE. [Concomitant]
     Active Substance: DEXAMETHASONE
     Dosage: 6.6 MG BEFORE ADMINISTRATION OF NAB-PTX
     Route: 042
  9. DEXAMETHASONE. [Concomitant]
     Active Substance: DEXAMETHASONE
     Dosage: 9.9 MG
     Route: 042

REACTIONS (1)
  - Myalgia [Unknown]
